FAERS Safety Report 10842476 (Version 1)
Quarter: 2015Q1

REPORT INFORMATION
  Report Type: Spontaneous
  Country: US (occurrence: US)
  Receive Date: 20150220
  Receipt Date: 20150220
  Transmission Date: 20150721
  Serious: No
  Sender: FDA-Public Use
  Company Number: US-JNJFOC-20150208256

PATIENT
  Age: 44 Year
  Sex: Female
  Weight: 71.67 kg

DRUGS (11)
  1. VENLAFAXINE [Concomitant]
     Active Substance: VENLAFAXINE HYDROCHLORIDE
     Indication: FIBROMYALGIA
     Route: 048
  2. IBUPROFEN. [Concomitant]
     Active Substance: IBUPROFEN
     Indication: PAIN
     Route: 048
  3. TROKENDI [Concomitant]
     Indication: FIBROMYALGIA
     Route: 048
     Dates: start: 20150204
  4. FENTANYL TRANSDERMAL SYSTEM [Suspect]
     Active Substance: FENTANYL
     Indication: PAIN
     Route: 062
     Dates: start: 20150204
  5. PROCATEROL HYDROCHLORIDE [Concomitant]
     Active Substance: PROCATEROL HYDROCHLORIDE
     Indication: RESPIRATORY DISORDER
     Dosage: 10 MG -325 MG UPTO FIVE TABLETS AS NEEDED
     Route: 055
  6. GABAPENTIN. [Concomitant]
     Active Substance: GABAPENTIN
     Indication: FIBROMYALGIA
     Route: 048
  7. HYDROCODONE [Concomitant]
     Active Substance: HYDROCODONE
     Indication: PAIN
     Dosage: 10 MG -325 MG UPTO FIVE TABLETS AS NEEDED
     Route: 048
  8. OMEPRAZOLE. [Concomitant]
     Active Substance: OMEPRAZOLE
     Indication: GASTRIC DISORDER
     Route: 048
  9. LOPERAMIDE [Concomitant]
     Active Substance: LOPERAMIDE
     Indication: DIARRHOEA
     Route: 048
  10. SPIRIVA [Concomitant]
     Active Substance: TIOTROPIUM BROMIDE MONOHYDRATE
     Indication: RESPIRATORY DISORDER
     Dosage: 10 MG -325 MG UPTO FIVE TABLETS AS NEEDED
     Route: 055
  11. BACLOFEN. [Concomitant]
     Active Substance: BACLOFEN
     Indication: PAIN
     Route: 048
     Dates: start: 20150204

REACTIONS (3)
  - Product adhesion issue [Unknown]
  - Inappropriate schedule of drug administration [Unknown]
  - Wrong technique in drug usage process [Unknown]

NARRATIVE: CASE EVENT DATE: 20150204
